FAERS Safety Report 6218622-4 (Version None)
Quarter: 2009Q2

REPORT INFORMATION
  Report Type: 
  Country: None (occurrence: None)
  Receive Date: 20090608
  Receipt Date: 20090603
  Transmission Date: 20091009
  Serious: Yes (Other)
  Sender: FDA-Public Use
  Company Number: US-JNJCH-2009015398

PATIENT
  Age: 32 Year
  Sex: Female
  Weight: 75.8 kg

DRUGS (3)
  1. SUDAFED 24 HOUR TABLETS [Suspect]
     Indication: NASOPHARYNGITIS
     Dosage: TEXT:ONE ONCE
     Route: 048
     Dates: start: 20090602, end: 20090602
  2. AZITHROMYCIN [Concomitant]
     Indication: DRUG USE FOR UNKNOWN INDICATION
     Dosage: TEXT:250 MG
     Route: 065
  3. DELSYM [Concomitant]
     Indication: DRUG USE FOR UNKNOWN INDICATION
     Dosage: TEXT:30 MG
     Route: 065

REACTIONS (4)
  - CHEST PAIN [None]
  - FEELING ABNORMAL [None]
  - HEART RATE INCREASED [None]
  - INSOMNIA [None]
